FAERS Safety Report 20123206 (Version 1)
Quarter: 2021Q4

REPORT INFORMATION
  Report Type: Report from Study
  Country: CA (occurrence: CA)
  Receive Date: 20211129
  Receipt Date: 20211129
  Transmission Date: 20220303
  Serious: Yes (Hospitalization)
  Sender: FDA-Public Use
  Company Number: CA-ABBVIE-21K-028-4177638-00

PATIENT
  Sex: Female

DRUGS (1)
  1. HUMIRA [Suspect]
     Active Substance: ADALIMUMAB
     Indication: Colitis ulcerative
     Route: 058
     Dates: start: 20180118

REACTIONS (6)
  - Haematochezia [Unknown]
  - Asthenia [Unknown]
  - Faeces discoloured [Unknown]
  - Dyspepsia [Unknown]
  - Insomnia [Unknown]
  - Urinary tract infection [Unknown]
